FAERS Safety Report 19186668 (Version 1)
Quarter: 2021Q2

REPORT INFORMATION
  Report Type: Spontaneous
  Country: GB (occurrence: GB)
  Receive Date: 20210427
  Receipt Date: 20210427
  Transmission Date: 20210717
  Serious: Yes (Other)
  Sender: FDA-Public Use
  Company Number: NVSC2021GB090873

PATIENT
  Age: 25 Day
  Sex: Female

DRUGS (11)
  1. ARA?C [Suspect]
     Active Substance: CYTARABINE
     Dosage: UNK (FLAGX2 (60 PERCENT))
     Route: 065
  2. CYTARABINE. [Suspect]
     Active Substance: CYTARABINE
     Indication: ACUTE MYELOID LEUKAEMIA
     Dosage: UNK (MACE 75 PERCENT)
     Route: 065
  3. ETOPOSIDE. [Suspect]
     Active Substance: ETOPOSIDE
     Indication: ACUTE MYELOID LEUKAEMIA
     Dosage: UNK (MACE 75 PERCENT)
     Route: 065
  4. ADE [CYTARABINE] [Suspect]
     Active Substance: CYTARABINE
     Indication: ACUTE MYELOID LEUKAEMIA
     Dosage: UNK
     Route: 065
  5. ARA?C [Suspect]
     Active Substance: CYTARABINE
     Indication: ACUTE MYELOID LEUKAEMIA
     Dosage: UNK (CHEMOTHERAPY, 60 PERCENT AND 75 PERCENT)
     Route: 065
  6. IDARUBICIN [Suspect]
     Active Substance: IDARUBICIN
     Indication: ACUTE MYELOID LEUKAEMIA
     Dosage: UNK (FLAGX2 (60 PERCENT))
     Route: 065
  7. ADE [ETOPOSIDE] [Suspect]
     Active Substance: ETOPOSIDE
  8. FLUDARABINE PHOSPHATE. [Suspect]
     Active Substance: FLUDARABINE PHOSPHATE
     Indication: ACUTE MYELOID LEUKAEMIA
     Dosage: UNK (FLAGX2 (60 PERCENT))
     Route: 065
  9. ADE [DAUNORUBICIN] [Suspect]
     Active Substance: DAUNORUBICIN
  10. AMSACRINE [Suspect]
     Active Substance: AMSACRINE
     Indication: ACUTE MYELOID LEUKAEMIA
     Dosage: UNK (MACE 75 PERCENT)
     Route: 065
  11. MITOXANTRONE [Suspect]
     Active Substance: MITOXANTRONE HYDROCHLORIDE
     Indication: ACUTE MYELOID LEUKAEMIA
     Dosage: UNK
     Route: 065

REACTIONS (6)
  - Acute myeloid leukaemia refractory [Unknown]
  - Product use in unapproved indication [Unknown]
  - Product use issue [Unknown]
  - Congestive cardiomyopathy [Unknown]
  - Circulatory collapse [Unknown]
  - Acute myeloid leukaemia recurrent [Unknown]
